FAERS Safety Report 13925668 (Version 1)
Quarter: 2017Q3

REPORT INFORMATION
  Report Type: Other
  Country: CA (occurrence: CA)
  Receive Date: 20170831
  Receipt Date: 20170831
  Transmission Date: 20171127
  Serious: Yes (Other)
  Sender: FDA-Public Use
  Company Number: CA-HIKMA PHARMACEUTICALS CO. LTD-2017CA011509

PATIENT

DRUGS (12)
  1. ASPIRIN                            /00002701/ [Concomitant]
     Active Substance: ASPIRIN
  2. HUMIRA [Suspect]
     Active Substance: ADALIMUMAB
     Indication: PRODUCT USED FOR UNKNOWN INDICATION
     Route: 065
  3. CLOPIDOGREL BISULFATE. [Concomitant]
     Active Substance: CLOPIDOGREL BISULFATE
  4. ENBREL [Suspect]
     Active Substance: ETANERCEPT
     Indication: PRODUCT USED FOR UNKNOWN INDICATION
     Route: 065
  5. NIASPAN [Concomitant]
     Active Substance: NIACIN
  6. TYLENOL [Concomitant]
     Active Substance: ACETAMINOPHEN
  7. INFLIXIMAB HOSPIRA [Suspect]
     Active Substance: INFLIXIMAB
     Indication: PSORIATIC ARTHROPATHY
     Dosage: 716.25 MG, UNK
     Route: 042
  8. SIMPONI [Suspect]
     Active Substance: GOLIMUMAB
     Indication: PRODUCT USED FOR UNKNOWN INDICATION
     Route: 065
  9. NITRO                              /00003201/ [Concomitant]
     Active Substance: NITROGLYCERIN
  10. ACTEMRA [Suspect]
     Active Substance: TOCILIZUMAB
     Indication: PRODUCT USED FOR UNKNOWN INDICATION
     Route: 065
  11. ROSUVASTATIN CALCIUM. [Concomitant]
     Active Substance: ROSUVASTATIN CALCIUM
  12. EZETROL [Concomitant]
     Active Substance: EZETIMIBE

REACTIONS (8)
  - Drug ineffective [Unknown]
  - Hypercholesterolaemia [Unknown]
  - Therapy non-responder [Unknown]
  - Headache [Unknown]
  - Cardiac disorder [Unknown]
  - Pain [Unknown]
  - Diarrhoea [Unknown]
  - Blood pressure increased [Unknown]
